FAERS Safety Report 7266439 (Version 2)
Quarter: 2014Q1

REPORT INFORMATION
  Report Type: Spontaneous
  Country: US (occurrence: US)
  Receive Date: 20100131
  Receipt Date: 20140122
  Transmission Date: 20141002
  Serious: Yes (Hospitalization)
  Sender: FDA-Public Use
  Company Number: US-JNJFOC-20100110519

PATIENT
  Age: 61 Year
  Sex: Female
  Weight: 68.04 kg

DRUGS (4)
  1. FENTANYL TRANSDERMAL SYSTEM [Suspect]
     Indication: BACK PAIN
     Route: 062
  2. FENTANYL TRANSDERMAL SYSTEM [Suspect]
     Indication: BACK PAIN
     Route: 062
     Dates: end: 20100116
  3. FENTANYL TRANSDERMAL SYSTEM [Suspect]
     Indication: BACK PAIN
     Route: 062
     Dates: start: 20100116
  4. OXYCODONE [Suspect]
     Indication: BACK PAIN
     Route: 065
     Dates: start: 200906

REACTIONS (9)
  - Pelvic fracture [Recovered/Resolved]
  - Convulsion [Unknown]
  - Toxicity to various agents [Unknown]
  - Pain [Not Recovered/Not Resolved]
  - Fall [Recovered/Resolved]
  - Drug ineffective [Not Recovered/Not Resolved]
  - Eating disorder [Not Recovered/Not Resolved]
  - Wrong technique in drug usage process [Not Recovered/Not Resolved]
  - Product quality issue [Unknown]
